FAERS Safety Report 4416991-9 (Version None)
Quarter: 2004Q3

REPORT INFORMATION
  Report Type: 
  Country: None (occurrence: None)
  Receive Date: 20040806
  Receipt Date: 20040519
  Transmission Date: 20050211
  Serious: No
  Sender: FDA-Public Use
  Company Number: US-GLAXOSMITHKLINE-A0511448A

PATIENT
  Age: 34 Year
  Sex: Male

DRUGS (3)
  1. MALARONE [Suspect]
     Indication: BABESIOSIS
     Dosage: 1TAB PER DAY
     Route: 048
     Dates: start: 20040512
  2. PREVACID [Concomitant]
  3. CARAFATE [Concomitant]
     Route: 048

REACTIONS (2)
  - DYSPEPSIA [None]
  - VOMITING [None]
